FAERS Safety Report 16782867 (Version 2)
Quarter: 2019Q3

REPORT INFORMATION
  Report Type: Report from Study
  Country: US (occurrence: US)
  Receive Date: 20190906
  Receipt Date: 20190916
  Transmission Date: 20191005
  Serious: Yes (Death, Other)
  Sender: FDA-Public Use
  Company Number: US-GILEAD-2019-0427144

PATIENT
  Age: 76 Year
  Sex: Female

DRUGS (12)
  1. AMLODIPINE [Concomitant]
     Active Substance: AMLODIPINE BESYLATE
  2. PREDNISONE. [Concomitant]
     Active Substance: PREDNISONE
  3. LISINOPRIL. [Concomitant]
     Active Substance: LISINOPRIL
  4. SINGULAIR [Concomitant]
     Active Substance: MONTELUKAST SODIUM
  5. BUSPIRONE [Concomitant]
     Active Substance: BUSPIRONE HYDROCHLORIDE
  6. ZOLOFT [Concomitant]
     Active Substance: SERTRALINE HYDROCHLORIDE
  7. AMBRISENTAN [Suspect]
     Active Substance: AMBRISENTAN
     Indication: PRODUCT USED FOR UNKNOWN INDICATION
     Dosage: 5 MG, QD
     Route: 065
  8. LASIX [Concomitant]
     Active Substance: FUROSEMIDE
  9. POTASSIUM [Concomitant]
     Active Substance: POTASSIUM
  10. CARVEDILOL. [Concomitant]
     Active Substance: CARVEDILOL
  11. ADCIRCA [Concomitant]
     Active Substance: TADALAFIL
  12. ELIQUIS [Concomitant]
     Active Substance: APIXABAN

REACTIONS (1)
  - Death [Fatal]

NARRATIVE: CASE EVENT DATE: 20190818
